FAERS Safety Report 4991663-0 (Version None)
Quarter: 2006Q2

REPORT INFORMATION
  Report Type: 
  Country: None (occurrence: None)
  Receive Date: 20060504
  Receipt Date: 20060421
  Transmission Date: 20061013
  Serious: Yes (Death, Hospitalization)
  Sender: FDA-Public Use
  Company Number: FR-AVENTIS-200611515FR

PATIENT
  Age: 42 Year
  Sex: Female

DRUGS (5)
  1. DININTEL [Suspect]
     Route: 048
     Dates: start: 19700101, end: 19751215
  2. TENUATE DOSPAN [Suspect]
     Route: 048
     Dates: start: 19700101, end: 19751215
  3. AMFEPRAMONE [Suspect]
     Route: 048
     Dates: start: 19870101, end: 19880415
  4. MEDIATOR [Suspect]
     Route: 048
     Dates: start: 19870101, end: 19880415
  5. FRINGANOR [Suspect]
     Route: 048
     Dates: start: 19700101, end: 19751215

REACTIONS (3)
  - CARDIOPULMONARY FAILURE [None]
  - DYSPNOEA [None]
  - PULMONARY HYPERTENSION [None]
